FAERS Safety Report 4798851-7 (Version None)
Quarter: 2005Q4

REPORT INFORMATION
  Report Type: 
  Country: None (occurrence: None)
  Receive Date: 20051014
  Receipt Date: 20051004
  Transmission Date: 20060501
  Serious: Yes (Disabling)
  Sender: FDA-Public Use
  Company Number: CA-GLAXOSMITHKLINE-A0577007A

PATIENT
  Age: 63 Year
  Sex: Female
  Weight: 63.7 kg

DRUGS (3)
  1. SALMETEROL/FLUTICASONE PROPIONATE 50/250UG [Suspect]
     Indication: CHRONIC OBSTRUCTIVE PULMONARY DISEASE
     Dosage: 1PUFF TWICE PER DAY
     Route: 055
     Dates: start: 20050915, end: 20050929
  2. QUININE [Concomitant]
     Indication: MUSCLE SPASMS
     Dosage: 30MG PER DAY
     Route: 048
  3. HYDROCHLOROTHIAZIDE [Concomitant]
     Indication: HYPERTENSION
     Dosage: 25MG PER DAY
     Route: 048

REACTIONS (2)
  - ABNORMAL SENSATION IN EYE [None]
  - CELLULITIS ORBITAL [None]
